FAERS Safety Report 7657195-6 (Version None)
Quarter: 2011Q3

REPORT INFORMATION
  Report Type: 
  Country: None (occurrence: None)
  Receive Date: 20110804
  Receipt Date: 20110726
  Transmission Date: 20111222
  Serious: Yes (Hospitalization)
  Sender: FDA-Public Use
  Company Number: JP-GENZYME-RENA-1001276

PATIENT

DRUGS (2)
  1. RENAGEL [Suspect]
     Dosage: 1.6 G, TID
     Route: 048
     Dates: start: 20110608
  2. RENAGEL [Suspect]
     Indication: HYPERPHOSPHATAEMIA
     Route: 065

REACTIONS (2)
  - RECTAL ULCER [None]
  - ANAL HAEMORRHAGE [None]
